FAERS Safety Report 8845159 (Version 1)
Quarter: 2012Q4

REPORT INFORMATION
  Report Type: 
  Country: FR (occurrence: FR)
  Receive Date: 20121017
  Receipt Date: 20121017
  Transmission Date: 20130627
  Serious: Yes (Hospitalization)
  Sender: FDA-Public Use
  Company Number: FR-SANOFI-AVENTIS-2012SA074124

PATIENT
  Age: 47 Year
  Sex: Female

DRUGS (1)
  1. CLAFORAN [Suspect]
     Indication: PNEUMONIA
     Route: 042
     Dates: start: 20101231

REACTIONS (1)
  - Bradycardia [Recovered/Resolved]
